FAERS Safety Report 7504430-0 (Version None)
Quarter: 2011Q2

REPORT INFORMATION
  Report Type: 
  Country: None (occurrence: None)
  Receive Date: 20110525
  Receipt Date: 20110520
  Transmission Date: 20111010
  Serious: Yes (Death)
  Sender: FDA-Public Use
  Company Number: US-CEPHALON-2011001829

PATIENT
  Sex: Male

DRUGS (6)
  1. PROVIGIL [Suspect]
     Indication: SLEEP APNOEA SYNDROME
     Route: 048
     Dates: start: 20080908, end: 20110217
  2. NORVASC [Concomitant]
  3. DORGESIC [Concomitant]
  4. LORAZEPAM [Concomitant]
  5. CYMBALTA [Concomitant]
  6. ABILIFY [Concomitant]

REACTIONS (1)
  - MYOCARDIAL INFARCTION [None]
